FAERS Safety Report 6166300-2 (Version None)
Quarter: 2009Q2

REPORT INFORMATION
  Report Type: 
  Country: None (occurrence: None)
  Receive Date: 20090422
  Receipt Date: 20090422
  Transmission Date: 20091009
  Serious: No
  Sender: FDA-Public Use
  Company Number: None

PATIENT
  Age: 44 Year
  Sex: Male
  Weight: 79.3795 kg

DRUGS (7)
  1. REMICADE [Suspect]
     Indication: RHEUMATOID ARTHRITIS
     Dosage: 5MG EVERY 7 WEEKS IV DRIP
     Route: 041
     Dates: start: 20020903, end: 20081122
  2. PREDNISONE [Concomitant]
  3. METHOTREXATE [Concomitant]
  4. ARAVA [Concomitant]
  5. FOLIC ACID [Concomitant]
  6. EVOXAC [Concomitant]
  7. NAPROXEN [Concomitant]

REACTIONS (4)
  - ERECTILE DYSFUNCTION [None]
  - INSOMNIA [None]
  - KNEE ARTHROPLASTY [None]
  - NEUROPATHY PERIPHERAL [None]
